FAERS Safety Report 9048307 (Version 1)
Quarter: 2013Q1

REPORT INFORMATION
  Report Type: Spontaneous
  Country: US (occurrence: None)
  Receive Date: 20130130
  Receipt Date: 20130130
  Transmission Date: 20140127
  Serious: Yes (Life-Threatening, Hospitalization)
  Sender: FDA-Public Use
  Company Number: None

PATIENT
  Age: 87 Year
  Sex: Male
  Weight: 90.1 kg

DRUGS (1)
  1. WARFARIN [Suspect]
     Indication: ATRIAL FIBRILLATION
     Dosage: OTHER
     Route: 048
     Dates: start: 20100601, end: 20130118

REACTIONS (4)
  - Haemorrhage intracranial [None]
  - Haemorrhage [None]
  - Fall [None]
  - Subdural haematoma [None]
